FAERS Safety Report 6956204-7 (Version None)
Quarter: 2010Q3

REPORT INFORMATION
  Report Type: 
  Country: None (occurrence: None)
  Receive Date: 20100826
  Receipt Date: 20100514
  Transmission Date: 20110219
  Serious: Yes (Hospitalization)
  Sender: FDA-Public Use
  Company Number: CV20100248

PATIENT
  Age: 75 Year
  Sex: Female

DRUGS (10)
  1. PROPOFOL [Suspect]
     Indication: INDUCTION OF ANAESTHESIA
     Dosage: 120 MG
  2. CURACIT (SUXAMETHONIUM CHLORIDE) (SUXAMETHONIUM CHLORIDE) [Concomitant]
  3. APODORM (NITRAZEPAM) (NITRAZEPAM) [Concomitant]
  4. FLUTIDE (FLUTICASONE PROPIONATE) (FLUTICASONE PROPIONATE) [Concomitant]
  5. SINEMET 25/100 (SINEMET) (SINEMET) [Concomitant]
  6. SOBRIL (OXAZEPAM) (OXAZEPAM) [Concomitant]
  7. EDRONAX (REBOXETINE) (REBOXETINE) [Concomitant]
  8. NORITREN (NORTRIPTYLINE HYDROCHLORIDE) (NORTRIPTYLINE HYDROCHLORIDE) [Concomitant]
  9. SINEMET 12.5/50 (SINEMET) (SINEMET) [Concomitant]
  10. ATROPIN (ATROPINE) (ATROPINE) [Concomitant]

REACTIONS (2)
  - OEDEMA PERIPHERAL [None]
  - PULMONARY EMBOLISM [None]
